FAERS Safety Report 10196360 (Version 1)
Quarter: 2014Q2

REPORT INFORMATION
  Report Type: Spontaneous
  Country: US (occurrence: US)
  Receive Date: 20140527
  Receipt Date: 20140527
  Transmission Date: 20141212
  Serious: Yes (Other)
  Sender: FDA-Public Use
  Company Number: US-JNJFOC-20140509854

PATIENT
  Sex: 0

DRUGS (3)
  1. DOXORUBICIN HYDROCHLORIDE [Suspect]
     Indication: HEPATOCELLULAR CARCINOMA
     Route: 014
  2. DOXORUBICIN HYDROCHLORIDE [Suspect]
     Indication: HEPATOCELLULAR CARCINOMA
     Route: 014
  3. LIPIODOL [Suspect]
     Indication: HEPATOCELLULAR CARCINOMA
     Route: 014

REACTIONS (7)
  - Biliary cast syndrome [Unknown]
  - Biliary dilatation [Unknown]
  - Biloma [Unknown]
  - Portal vein thrombosis [Unknown]
  - Portal vein stenosis [Unknown]
  - Incorrect route of drug administration [Unknown]
  - Off label use [Unknown]
